FAERS Safety Report 17463697 (Version 2)
Quarter: 2020Q2

REPORT INFORMATION
  Report Type: Spontaneous
  Country: US (occurrence: US)
  Receive Date: 20200226
  Receipt Date: 20200629
  Transmission Date: 20200713
  Serious: Yes (Other)
  Sender: FDA-Public Use
  Company Number: US-ELI_LILLY_AND_COMPANY-US202002007795

PATIENT
  Age: 30 Year
  Sex: Female
  Weight: 58.5 kg

DRUGS (2)
  1. EMGALITY [Suspect]
     Active Substance: GALCANEZUMAB-GNLM
     Dosage: 120 MG, MONTHLY (1/M)
     Route: 058
  2. EMGALITY [Suspect]
     Active Substance: GALCANEZUMAB-GNLM
     Indication: MIGRAINE
     Dosage: 120 MG, MONTHLY (1/M)
     Route: 058
     Dates: start: 20190611, end: 20190813

REACTIONS (3)
  - Panic attack [Recovered/Resolved with Sequelae]
  - Alopecia [Recovering/Resolving]
  - Anxiety [Recovered/Resolved with Sequelae]

NARRATIVE: CASE EVENT DATE: 20190820
